FAERS Safety Report 19410258 (Version 3)
Quarter: 2021Q2

REPORT INFORMATION
  Report Type: Spontaneous
  Country: US (occurrence: US)
  Receive Date: 20210614
  Receipt Date: 20210628
  Transmission Date: 20210717
  Serious: No
  Sender: FDA-Public Use
  Company Number: US-JNJFOC-20210616603

PATIENT
  Age: 65 Year
  Sex: Female
  Weight: 95.34 kg

DRUGS (1)
  1. PEPCID AC [Suspect]
     Active Substance: FAMOTIDINE
     Indication: DYSPEPSIA
     Dosage: ONCE ONLY WHEN I GET THE OCCASIONAL HEARTBURN?LAST ADMIN DATE: AT THE END OF MAY, 2021
     Route: 048
     Dates: start: 202105

REACTIONS (1)
  - Drug ineffective [Unknown]

NARRATIVE: CASE EVENT DATE: 202105
